FAERS Safety Report 5848567-0 (Version None)
Quarter: 2008Q3

REPORT INFORMATION
  Report Type: 
  Country: None (occurrence: None)
  Receive Date: 20080818
  Receipt Date: 20080813
  Transmission Date: 20090109
  Serious: Yes (Other)
  Sender: FDA-Public Use
  Company Number: US-PURDUE-USA_2008_0034123

PATIENT
  Sex: Female

DRUGS (1)
  1. OXYCONTIN [Suspect]
     Indication: DRUG USE FOR UNKNOWN INDICATION
     Dosage: 20 MG, BID
     Route: 048

REACTIONS (10)
  - ANOREXIA [None]
  - FATIGUE [None]
  - HEART RATE DECREASED [None]
  - HYPOTENSION [None]
  - OROPHARYNGEAL PAIN [None]
  - POLLAKIURIA [None]
  - RASH MACULAR [None]
  - SKIN LESION [None]
  - VIRAL LOAD DECREASED [None]
  - WHITE BLOOD CELL COUNT DECREASED [None]
